FAERS Safety Report 8319652-9 (Version None)
Quarter: 2012Q2

REPORT INFORMATION
  Report Type: 
  Country: None (occurrence: None)
  Receive Date: 20120427
  Receipt Date: 20120416
  Transmission Date: 20120825
  Serious: Yes (Hospitalization, Other)
  Sender: FDA-Public Use
  Company Number: US-JNJFOC-20120409189

PATIENT
  Sex: Male
  Weight: 117.94 kg

DRUGS (6)
  1. MEPERIDINE HCL [Suspect]
     Indication: INFUSION RELATED REACTION
     Route: 065
  2. OXYGEN [Concomitant]
     Indication: INFUSION RELATED REACTION
     Route: 065
  3. BENADRYL [Suspect]
     Indication: INFUSION RELATED REACTION
     Route: 065
  4. SIPULEUCEL-T [Concomitant]
     Route: 042
     Dates: start: 20120315, end: 20120315
  5. SIPULEUCEL-T [Concomitant]
     Indication: PROSTATE CANCER
     Route: 042
     Dates: start: 20120301, end: 20120301
  6. COUMADIN [Concomitant]
     Indication: PRODUCT USED FOR UNKNOWN INDICATION
     Route: 065

REACTIONS (3)
  - ASTHENIA [None]
  - FALL [None]
  - OFF LABEL USE [None]
